FAERS Safety Report 9376703 (Version 1)
Quarter: 2013Q3

REPORT INFORMATION
  Report Type: Report from Study
  Country: CA (occurrence: CA)
  Receive Date: 20130701
  Receipt Date: 20130701
  Transmission Date: 20140515
  Serious: Yes (Other)
  Sender: FDA-Public Use
  Company Number: CA-JNJFOC-20130617032

PATIENT
  Age: 37 Year
  Sex: Female

DRUGS (5)
  1. REMICADE [Suspect]
     Indication: CROHN^S DISEASE
     Dosage: LAST INFUSION
     Route: 042
     Dates: start: 20130503
  2. REMICADE [Suspect]
     Indication: CROHN^S DISEASE
     Route: 042
     Dates: start: 20110615
  3. IMURAN [Concomitant]
     Route: 065
  4. ASACOL [Concomitant]
     Route: 065
  5. SALOFALK [Concomitant]
     Route: 065

REACTIONS (1)
  - Haematochezia [Unknown]
